FAERS Safety Report 6620333-8 (Version None)
Quarter: 2010Q1

REPORT INFORMATION
  Report Type: 
  Country: None (occurrence: None)
  Receive Date: 20100309
  Receipt Date: 20100224
  Transmission Date: 20100710
  Serious: Yes (Other)
  Sender: FDA-Public Use
  Company Number: BR-PFIZER INC-2010023829

PATIENT
  Age: 52 Year
  Sex: Male
  Weight: 70 kg

DRUGS (5)
  1. CHAMPIX [Suspect]
     Indication: SMOKING CESSATION THERAPY
     Dosage: 1 MG, 1X/DAY
     Route: 048
     Dates: start: 20091201
  2. OMEPRAZOL [Concomitant]
     Indication: ULCER
     Dosage: UNK
     Dates: start: 20100101
  3. LIPITOR [Concomitant]
     Dosage: 40 MG, UNK
     Dates: start: 20100101
  4. CLOPIDOGREL [Concomitant]
     Indication: COAGULOPATHY
     Dosage: 75 MG, UNK
     Dates: start: 20100101
  5. SELOZOK [Concomitant]
     Indication: CARDIAC DISORDER
     Dosage: 25 MG, UNK
     Dates: start: 20100101

REACTIONS (9)
  - ANGIOPLASTY [None]
  - ARTERIAL OCCLUSIVE DISEASE [None]
  - CATHETERISATION CARDIAC [None]
  - HAEMORRHAGE [None]
  - HYPOTENSION [None]
  - INCREASED APPETITE [None]
  - INSOMNIA [None]
  - PALLOR [None]
  - SOMNOLENCE [None]
